FAERS Safety Report 17254012 (Version 3)
Quarter: 2021Q4

REPORT INFORMATION
  Report Type: Report from Study
  Country: DE (occurrence: DE)
  Receive Date: 20200109
  Receipt Date: 20211122
  Transmission Date: 20220303
  Serious: Yes (Death, Other)
  Sender: FDA-Public Use
  Company Number: DE-ACCORD-157803

PATIENT
  Sex: Male
  Weight: 96 kg

DRUGS (2)
  1. PEGFILGRASTIM [Suspect]
     Active Substance: PEGFILGRASTIM
     Indication: Pancreatic carcinoma
     Dosage: 6 MILLIGRAM, CYCLE 6 MG (STRENGTH: 6 MG; 1ST CYCLE)
     Route: 065
     Dates: start: 20190415
  2. PEGFILGRASTIM [Suspect]
     Active Substance: PEGFILGRASTIM
     Dosage: 6 MILLIGRAM, CYCLE 6 MG (STRENGTH: 6 MG; 2ND CYCLE)
     Route: 065
     Dates: start: 20190618

REACTIONS (3)
  - Cardiac arrest [Fatal]
  - Leukocytosis [Unknown]
  - Off label use [Unknown]

NARRATIVE: CASE EVENT DATE: 20190624
